FAERS Safety Report 16680395 (Version 1)
Quarter: 2019Q3

REPORT INFORMATION
  Report Type: Spontaneous
  Country: US (occurrence: US)
  Receive Date: 20190807
  Receipt Date: 20190807
  Transmission Date: 20191004
  Serious: No
  Sender: FDA-Public Use
  Company Number: US-009507513-1907USA004479

PATIENT
  Age: 7 Year
  Sex: Male

DRUGS (1)
  1. DULERA [Suspect]
     Active Substance: FORMOTEROL FUMARATE DIHYDRATE\MOMETASONE FUROATE
     Dosage: 200 MCG, TWO PUFFS TWICE DAILY
     Route: 055

REACTIONS (3)
  - Product administered to patient of inappropriate age [Unknown]
  - Product prescribing error [Unknown]
  - Product use issue [Unknown]
